FAERS Safety Report 9519306 (Version 1)
Quarter: 2013Q1

REPORT INFORMATION
  Report Type: Spontaneous
  Country: US (occurrence: None)
  Receive Date: 20130305
  Receipt Date: 20130305
  Transmission Date: 20140127
  Serious: Yes (Other)
  Sender: FDA-Public Use
  Company Number: 163-21880-12062017

PATIENT
  Age: 76 Year
  Sex: Male
  Weight: 65.77 kg

DRUGS (5)
  1. REVLIMID (LENALIDOMIDE) (CAPSULES) [Suspect]
     Indication: PLASMA CELL MYELOMA
     Dosage: 25 MG, 21 IN 28 D, PO
     Route: 048
     Dates: start: 20120522
  2. ZOMETA (ZOLEDRONIC ACID) (UNKNOWN) [Concomitant]
  3. FENTANYL (FENTANYL) (UNKNOWN) (FENTANYL) [Concomitant]
  4. ASA (ACETYLSALICYLIC ACID) (UNKNOWN) [Concomitant]
  5. CLARITIN (LORATADINE) (UNKNOWN) [Concomitant]

REACTIONS (7)
  - Lethargy [None]
  - Pain [None]
  - Constipation [None]
  - Feeling abnormal [None]
  - Tension [None]
  - Pain in extremity [None]
  - Rash [None]
